FAERS Safety Report 6775392-9 (Version None)
Quarter: 2010Q2

REPORT INFORMATION
  Report Type: 
  Country: None (occurrence: None)
  Receive Date: 20100617
  Receipt Date: 20100614
  Transmission Date: 20101027
  Serious: Yes (Other)
  Sender: FDA-Public Use
  Company Number: JP-ROXANE LABORATORIES, INC.-2010-RO-00717RO

PATIENT
  Age: 72 Year
  Sex: Female

DRUGS (2)
  1. METHOTREXATE [Suspect]
     Indication: RHEUMATOID ARTHRITIS
  2. ANTI-TNF ALPHA [Suspect]
     Indication: RHEUMATOID ARTHRITIS

REACTIONS (2)
  - EPSTEIN-BARR VIRUS TEST POSITIVE [None]
  - LYMPHOPROLIFERATIVE DISORDER [None]
